FAERS Safety Report 9286428 (Version 1)
Quarter: 2013Q2

REPORT INFORMATION
  Report Type: Spontaneous
  Country: FR (occurrence: FR)
  Receive Date: 20130513
  Receipt Date: 20130513
  Transmission Date: 20140414
  Serious: Yes (Hospitalization)
  Sender: FDA-Public Use
  Company Number: FR-JNJFOC-20130504035

PATIENT
  Age: 56 Year
  Sex: Male

DRUGS (6)
  1. REMICADE [Suspect]
     Indication: PSORIASIS
     Route: 042
     Dates: start: 20130314, end: 20130328
  2. STAGID [Concomitant]
     Indication: TYPE 2 DIABETES MELLITUS
     Route: 065
  3. GLIMEPIRIDE [Concomitant]
     Indication: TYPE 2 DIABETES MELLITUS
     Route: 065
  4. RIFINAH [Concomitant]
     Indication: LATENT TUBERCULOSIS
     Dosage: 300MG ISONIAZID AND 150MG RIFAMPICIN IN MORNING
     Route: 065
  5. PARACETAMOL [Concomitant]
     Indication: PAIN
     Route: 065
  6. PARACETAMOL [Concomitant]
     Indication: PYREXIA
     Route: 065

REACTIONS (2)
  - Dermatitis exfoliative [Not Recovered/Not Resolved]
  - Temperature regulation disorder [Not Recovered/Not Resolved]
